FAERS Safety Report 22376988 (Version 1)
Quarter: 2023Q2

REPORT INFORMATION
  Report Type: Other
  Country: CA (occurrence: CA)
  Receive Date: 20230529
  Receipt Date: 20230529
  Transmission Date: 20230721
  Serious: Yes (Other)
  Sender: FDA-Public Use
  Company Number: CA-TOLMAR, INC.-23CA040803

PATIENT
  Sex: Male

DRUGS (2)
  1. ELIGARD [Suspect]
     Active Substance: LEUPROLIDE ACETATE
     Indication: Prostate cancer
     Dosage: 30 MILLIGRAM, Q 4 MONTH
     Route: 058
     Dates: start: 20150429
  2. ELIGARD [Suspect]
     Active Substance: LEUPROLIDE ACETATE
     Dosage: 30 MILLIGRAM, Q 4 MONTH
     Route: 058
     Dates: start: 20230426

REACTIONS (1)
  - Terminal state [Unknown]
